FAERS Safety Report 5682794-0 (Version None)
Quarter: 2008Q1

REPORT INFORMATION
  Report Type: 
  Country: None (occurrence: None)
  Receive Date: 20080327
  Receipt Date: 20080327
  Transmission Date: 20080703
  Serious: Yes (Death, Hospitalization, Disabling)
  Sender: FDA-Public Use
  Company Number: None

PATIENT
  Age: 91 Year
  Sex: Female
  Weight: 43.0917 kg

DRUGS (4)
  1. HEPARIN [Suspect]
     Indication: ABSCESS
     Dates: start: 20071001, end: 20080223
  2. HEPARIN [Suspect]
     Indication: PAIN IN EXTREMITY
     Dates: start: 20071001, end: 20080223
  3. HEPARIN [Suspect]
     Indication: SKIN HAEMORRHAGE
     Dates: start: 20071001, end: 20080223
  4. HEPARIN [Suspect]
     Indication: THROMBOSIS
     Dates: start: 20071001, end: 20080223

REACTIONS (5)
  - BLOOD PRESSURE DECREASED [None]
  - HIP FRACTURE [None]
  - NO THERAPEUTIC RESPONSE [None]
  - PAIN IN EXTREMITY [None]
  - SKIN HAEMORRHAGE [None]
